FAERS Safety Report 9523688 (Version 2)
Quarter: 2014Q4

REPORT INFORMATION
  Report Type: Spontaneous
  Country: FR (occurrence: FR)
  Receive Date: 20130913
  Receipt Date: 20141013
  Transmission Date: 20150529
  Serious: Yes (Hospitalization)
  Sender: FDA-Public Use
  Company Number: FR-ROCHE-1271507

PATIENT
  Age: 67 Year
  Sex: Male

DRUGS (17)
  1. FASTURTEC [Suspect]
     Active Substance: RASBURICASE
     Indication: PROPHYLAXIS
     Route: 042
     Dates: start: 20130726, end: 20130726
  2. ETOPOSIDE. [Suspect]
     Active Substance: ETOPOSIDE
     Indication: B-CELL LYMPHOMA
     Route: 042
     Dates: start: 20130725, end: 20130727
  3. FERRITIN [Concomitant]
     Active Substance: FERRITIN
     Route: 065
     Dates: start: 20130726
  4. VINCRISTINE [Concomitant]
     Active Substance: VINCRISTINE
  5. DEXAMETHASONE. [Concomitant]
     Active Substance: DEXAMETHASONE
  6. MABTHERA [Suspect]
     Active Substance: RITUXIMAB
     Indication: B-CELL LYMPHOMA
     Route: 042
     Dates: start: 20130725, end: 20130725
  7. CEFTRIAXONE. [Suspect]
     Active Substance: CEFTRIAXONE
     Indication: B-CELL LYMPHOMA
     Route: 042
     Dates: start: 20130726, end: 20130729
  8. CYCLOPHOSPHAMIDE. [Concomitant]
     Active Substance: CYCLOPHOSPHAMIDE
  9. CARBOPLATIN. [Suspect]
     Active Substance: CARBOPLATIN
     Indication: B-CELL LYMPHOMA
     Route: 042
     Dates: start: 20130726, end: 20130726
  10. NARCAN [Concomitant]
     Active Substance: NALOXONE HYDROCHLORIDE
  11. RITUXIMAB [Concomitant]
     Active Substance: RITUXIMAB
  12. FASTURTEC [Concomitant]
     Active Substance: RASBURICASE
     Route: 065
     Dates: start: 20130726
  13. IFOSFAMIDE INTRAVENOUS [Suspect]
     Active Substance: IFOSFAMIDE
     Indication: B-CELL LYMPHOMA
     Dosage: (5 G/M2, IE 7.2 G PER DAY
     Route: 042
     Dates: start: 20130726, end: 20130726
  14. UROMITEXAN [Suspect]
     Active Substance: MESNA
     Indication: B-CELL LYMPHOMA
     Route: 042
     Dates: start: 20130726, end: 20130726
  15. AMIKACINE [Suspect]
     Active Substance: AMIKACIN
     Indication: B-CELL LYMPHOMA
     Route: 042
     Dates: start: 20130726, end: 20130729
  16. RIVOTRIL [Concomitant]
     Active Substance: CLONAZEPAM
     Route: 065
     Dates: start: 20130727, end: 20130728
  17. DOXORUBICIN [Concomitant]
     Active Substance: DOXORUBICIN

REACTIONS (1)
  - Encephalopathy [Recovered/Resolved]

NARRATIVE: CASE EVENT DATE: 20130726
